FAERS Safety Report 8359147-X (Version None)
Quarter: 2012Q2

REPORT INFORMATION
  Report Type: 
  Country: None (occurrence: None)
  Receive Date: 20120511
  Receipt Date: 20120503
  Transmission Date: 20120825
  Serious: Yes (Other)
  Sender: FDA-Public Use
  Company Number: ADR-2012-00849

PATIENT
  Sex: Female

DRUGS (2)
  1. BACLOFEN [Concomitant]
  2. BACLOFEN [Suspect]
     Indication: MUSCLE SPASTICITY
     Dosage: 1,000 MCG/ML

REACTIONS (3)
  - NEOPLASM MALIGNANT [None]
  - MUSCLE SPASTICITY [None]
  - CONDITION AGGRAVATED [None]
